FAERS Safety Report 11164243 (Version 1)
Quarter: 2015Q2

REPORT INFORMATION
  Report Type: Spontaneous
  Country: US (occurrence: None)
  Receive Date: 20150603
  Receipt Date: 20150603
  Transmission Date: 20150821
  Serious: No
  Sender: FDA-Public Use
  Company Number: None

PATIENT
  Age: 53 Year
  Sex: Female
  Weight: 65.77 kg

DRUGS (1)
  1. ESCITALOPRAM [Suspect]
     Active Substance: ESCITALOPRAM OXALATE
     Indication: DEPRESSION
     Dosage: 1 PILL ONCE DAILY TAKEN BY MOUTH
     Route: 048
     Dates: start: 20141201, end: 20150228

REACTIONS (6)
  - Insomnia [None]
  - Suicidal ideation [None]
  - Headache [None]
  - Dry eye [None]
  - Dry mouth [None]
  - Product substitution issue [None]

NARRATIVE: CASE EVENT DATE: 20150602
